FAERS Safety Report 8889482 (Version 1)
Quarter: 2012Q4

REPORT INFORMATION
  Report Type: Spontaneous
  Country: NL (occurrence: None)
  Receive Date: 20121031
  Receipt Date: 20121031
  Transmission Date: 20130627
  Serious: Yes (Hospitalization)
  Sender: FDA-Public Use
  Company Number: IMP_06053_2012

PATIENT
  Age: 84 Year
  Sex: Male

DRUGS (2)
  1. METFORMIN (METFORMIN) [Suspect]
     Indication: TYPE 2 DIABETES MELLITUS
     Dosage: 500 mg bid
  2. METFORMIN (METFORMIN) [Suspect]
     Indication: TYPE 2 DIABETES MELLITUS
     Dosage: df

REACTIONS (5)
  - Lactic acidosis [None]
  - Prostatitis [None]
  - Delirium [None]
  - Respiratory alkalosis [None]
  - Metabolic acidosis [None]
